FAERS Safety Report 5751903-7 (Version None)
Quarter: 2008Q2

REPORT INFORMATION
  Report Type: 
  Country: None (occurrence: None)
  Receive Date: 20080529
  Receipt Date: 20080529
  Transmission Date: 20081010
  Serious: Yes (Death)
  Sender: FDA-Public Use
  Company Number: None

PATIENT
  Age: 62 Year
  Sex: Female

DRUGS (1)
  1. HEPARIN [Suspect]
     Indication: STENT PLACEMENT
     Dates: start: 20080407, end: 20080407

REACTIONS (6)
  - GASTROINTESTINAL DISORDER [None]
  - HEMIPLEGIA [None]
  - LEG AMPUTATION [None]
  - POOR PERIPHERAL CIRCULATION [None]
  - RENAL DISORDER [None]
  - THROMBOSIS [None]
